FAERS Safety Report 8576975-6 (Version None)
Quarter: 2012Q3

REPORT INFORMATION
  Report Type: 
  Country: None (occurrence: None)
  Receive Date: 20120807
  Receipt Date: 20120801
  Transmission Date: 20120928
  Serious: Yes (Hospitalization)
  Sender: FDA-Public Use
  Company Number: PHHY2012IT067161

PATIENT
  Sex: Female

DRUGS (2)
  1. YAZ [Concomitant]
  2. GILENYA [Suspect]
     Indication: IMMUNOMODULATORY THERAPY
     Dosage: 0.5 MG, QD
     Route: 048
     Dates: start: 20111201, end: 20120715

REACTIONS (3)
  - MANIA [None]
  - OBSESSIVE THOUGHTS [None]
  - ABNORMAL BEHAVIOUR [None]
